FAERS Safety Report 9886697 (Version 1)
Quarter: 2014Q1

REPORT INFORMATION
  Report Type: Spontaneous
  Country: US (occurrence: US)
  Receive Date: 20140210
  Receipt Date: 20140210
  Transmission Date: 20141002
  Serious: No
  Sender: FDA-Public Use
  Company Number: US-PFIZER INC-2014034870

PATIENT
  Sex: Female

DRUGS (1)
  1. NEURONTIN [Suspect]
     Indication: HEADACHE
     Dosage: UNK

REACTIONS (4)
  - Off label use [Unknown]
  - Salivary hypersecretion [Not Recovered/Not Resolved]
  - Akathisia [Not Recovered/Not Resolved]
  - Dyskinesia [Not Recovered/Not Resolved]
